FAERS Safety Report 24265211 (Version 1)
Quarter: 2024Q3

REPORT INFORMATION
  Report Type: Spontaneous
  Country: US (occurrence: None)
  Receive Date: 20240828
  Receipt Date: 20240828
  Transmission Date: 20241017
  Serious: Yes (Other)
  Sender: Public
  Company Number: None

PATIENT
  Sex: Female

DRUGS (15)
  1. FORTEO [Suspect]
     Active Substance: TERIPARATIDE
     Indication: Osteoporosis
     Dosage: FREQUENCY : DAILY;?
     Dates: start: 2022, end: 202410
  2. PREGABALIN [Concomitant]
     Active Substance: PREGABALIN
  3. DONEPEZIL [Concomitant]
     Active Substance: DONEPEZIL\DONEPEZIL HYDROCHLORIDE
  4. ATORVASTATIN [Concomitant]
     Active Substance: ATORVASTATIN
  5. pantroprazole [Concomitant]
  6. DULOXETINE [Concomitant]
     Active Substance: DULOXETINE
  7. HYDROXYZINE [Concomitant]
     Active Substance: HYDROXYZINE HYDROCHLORIDE
  8. TIZANIDINE [Concomitant]
     Active Substance: TIZANIDINE
  9. FORTEO [Concomitant]
     Active Substance: TERIPARATIDE
  10. TYLENOL EXTRA STRENGTH [Concomitant]
     Active Substance: ACETAMINOPHEN
  11. VITAMIN C [Concomitant]
     Active Substance: ASCORBIC ACID
  12. ASPIRIN [Concomitant]
     Active Substance: ASPIRIN
  13. PROBIOTICS NOS [Concomitant]
     Active Substance: PROBIOTICS NOS
  14. VITAMIN D3 [Concomitant]
     Active Substance: CHOLECALCIFEROL
  15. women^s daily multi vitamin [Concomitant]

REACTIONS (5)
  - Rhinorrhoea [None]
  - Cough [None]
  - Throat irritation [None]
  - Rash macular [None]
  - Pharyngeal swelling [None]
